FAERS Safety Report 18647040 (Version 1)
Quarter: 2020Q4

REPORT INFORMATION
  Report Type: Spontaneous
  Country: CA (occurrence: CA)
  Receive Date: 20201222
  Receipt Date: 20201222
  Transmission Date: 20210114
  Serious: Yes (Life-Threatening, Hospitalization, Other)
  Sender: FDA-Public Use
  Company Number: CA-SUN PHARMACEUTICAL INDUSTRIES LTD-2020R1-272179

PATIENT
  Age: 82 Year
  Sex: Female

DRUGS (19)
  1. OLANZAPINE. [Suspect]
     Active Substance: OLANZAPINE
     Indication: PRODUCT USED FOR UNKNOWN INDICATION
     Dosage: 10 MILLIGRAM, UNK
     Route: 065
  2. OLANZAPINE. [Suspect]
     Active Substance: OLANZAPINE
     Indication: DYSPHAGIA
  3. RISPERIDONE. [Suspect]
     Active Substance: RISPERIDONE
     Indication: PRODUCT USED FOR UNKNOWN INDICATION
     Dosage: UNK
     Route: 065
  4. DULOXETINE. [Suspect]
     Active Substance: DULOXETINE
     Indication: DYSPHAGIA
  5. RISPERIDONE. [Suspect]
     Active Substance: RISPERIDONE
     Indication: DYSPHAGIA
  6. LORAZEPAM. [Suspect]
     Active Substance: LORAZEPAM
     Indication: PHAGOPHOBIA
     Dosage: 10 MILLIGRAM, UNK
     Route: 065
  7. LORAZEPAM. [Suspect]
     Active Substance: LORAZEPAM
     Indication: CHOKING SENSATION
  8. VENLAFAXINE [Suspect]
     Active Substance: VENLAFAXINE HYDROCHLORIDE
     Indication: CHOKING SENSATION
  9. LORAZEPAM. [Suspect]
     Active Substance: LORAZEPAM
     Indication: DYSPHAGIA
  10. MIRTAZAPINE. [Suspect]
     Active Substance: MIRTAZAPINE
     Indication: PHAGOPHOBIA
     Dosage: 45 MILLIGRAM, UNK
     Route: 065
  11. DULOXETINE. [Suspect]
     Active Substance: DULOXETINE
     Indication: CHOKING SENSATION
  12. OLANZAPINE. [Suspect]
     Active Substance: OLANZAPINE
     Indication: CHOKING SENSATION
  13. RISPERIDONE. [Suspect]
     Active Substance: RISPERIDONE
     Indication: CHOKING SENSATION
  14. MIRTAZAPINE. [Suspect]
     Active Substance: MIRTAZAPINE
     Indication: DYSPHAGIA
  15. MIRTAZAPINE. [Suspect]
     Active Substance: MIRTAZAPINE
     Indication: CHOKING SENSATION
  16. DULOXETINE. [Suspect]
     Active Substance: DULOXETINE
     Indication: PHAGOPHOBIA
     Dosage: 60 MILLIGRAM, UNK
     Route: 065
  17. OLANZAPINE. [Suspect]
     Active Substance: OLANZAPINE
     Indication: PHAGOPHOBIA
  18. VENLAFAXINE [Suspect]
     Active Substance: VENLAFAXINE HYDROCHLORIDE
     Indication: PHAGOPHOBIA
     Dosage: UNK
     Route: 065
  19. RISPERIDONE. [Suspect]
     Active Substance: RISPERIDONE
     Indication: PHAGOPHOBIA

REACTIONS (5)
  - Drug ineffective [Unknown]
  - Tardive dyskinesia [Unknown]
  - Therapeutic product effect incomplete [Unknown]
  - Drug resistance [Unknown]
  - Phagophobia [Unknown]
